FAERS Safety Report 4740527-6 (Version None)
Quarter: 2005Q3

REPORT INFORMATION
  Report Type: 
  Country: None (occurrence: None)
  Receive Date: 20050809
  Receipt Date: 20050805
  Transmission Date: 20060218
  Serious: Yes (Other)
  Sender: FDA-Public Use
  Company Number: 004105

PATIENT
  Sex: Female

DRUGS (6)
  1. MEDROXYPROGESTERONE ACETATE [Suspect]
  2. ESTRADIOL [Suspect]
  3. ESTRACE [Suspect]
  4. PROVERA [Suspect]
  5. PREMARIN [Suspect]
  6. ESTRADERM [Suspect]

REACTIONS (1)
  - BREAST CANCER FEMALE [None]
